FAERS Safety Report 7742891-2 (Version None)
Quarter: 2011Q3

REPORT INFORMATION
  Report Type: 
  Country: None (occurrence: None)
  Receive Date: 20110831
  Receipt Date: 20110822
  Transmission Date: 20111222
  Serious: Yes (Hospitalization)
  Sender: FDA-Public Use
  Company Number: 2011SP039676

PATIENT
  Sex: Female

DRUGS (2)
  1. DALIRESP [Concomitant]
  2. DULERA ORAL INHALATION [Suspect]
     Indication: CHRONIC OBSTRUCTIVE PULMONARY DISEASE
     Dosage: INH
     Route: 055

REACTIONS (5)
  - NAUSEA [None]
  - OFF LABEL USE [None]
  - DIARRHOEA [None]
  - VOMITING [None]
  - MALAISE [None]
